FAERS Safety Report 8606888 (Version 2)
Quarter: 2013Q2

REPORT INFORMATION
  Report Type: Spontaneous
  Country: US (occurrence: US)
  Receive Date: 20120611
  Receipt Date: 20130617
  Transmission Date: 20140414
  Serious: Yes (Hospitalization, Disabling, Other)
  Sender: FDA-Public Use
  Company Number: US-ASTRAZENECA-2012SE34802

PATIENT
  Age: 64 Year
  Sex: Female
  Weight: 104.3 kg

DRUGS (30)
  1. NEXIUM [Suspect]
     Indication: HYPERCHLORHYDRIA
     Route: 048
  2. NEXIUM [Suspect]
     Indication: HYPERCHLORHYDRIA
     Route: 048
     Dates: start: 2000
  3. PANTOPRAZOLE [Concomitant]
  4. ZANTAC [Concomitant]
  5. TUMS [Concomitant]
  6. ZOCOR [Concomitant]
     Dates: start: 20051218
  7. FLUCONAZOLE [Concomitant]
     Dates: start: 20060508
  8. HYDROCODONE ACETAMINOPHEN [Concomitant]
     Dates: start: 20070420
  9. BENAZEPRIL HCTZ [Concomitant]
     Dates: start: 20070504
  10. METOPROLOL SUCCINATE [Concomitant]
     Dates: start: 20080429
  11. LEVOTHYROXINE [Concomitant]
     Dates: start: 20080728
  12. CARVEDILOL [Concomitant]
     Dates: start: 20090211
  13. FLUOXETINE HCL [Concomitant]
     Dates: start: 20090330
  14. PHENAZOPYRIDINE [Concomitant]
     Dates: start: 20090330
  15. ATENOLOL [Concomitant]
     Dates: start: 20090503
  16. ALPRAZOLAM [Concomitant]
     Dates: start: 20090622
  17. SERTRALINE [Concomitant]
     Dates: start: 20090922
  18. DILTIAZEM [Concomitant]
     Dates: start: 20100716
  19. PRISTIQ [Concomitant]
     Dates: start: 20100902
  20. NITROGLYCERIN [Concomitant]
     Dates: start: 20101011
  21. MELOXICAM [Concomitant]
     Dates: start: 20100923
  22. PRAVASTATIN [Concomitant]
     Dates: start: 20111018
  23. PRAMIPEXOLE [Concomitant]
     Dates: start: 20110922
  24. CARISOPRODOL [Concomitant]
     Dates: start: 20110909
  25. HYDROXYZINE [Concomitant]
  26. FENOFIBRATE [Concomitant]
     Dates: start: 20121102
  27. TRILIPIX [Concomitant]
     Dates: start: 20130326
  28. DOXEPIN [Concomitant]
     Dates: start: 20130319
  29. PYRELLE HB [Concomitant]
  30. PREDNISONE [Concomitant]
     Dates: start: 20120924

REACTIONS (9)
  - Spinal fracture [Unknown]
  - Femur fracture [None]
  - Arthropathy [Unknown]
  - Osteoporosis [Unknown]
  - Carpal tunnel syndrome [Unknown]
  - Arthritis [Unknown]
  - Glaucoma [Unknown]
  - Vitamin D deficiency [Unknown]
  - Depression [Unknown]
